FAERS Safety Report 17336339 (Version 3)
Quarter: 2025Q2

REPORT INFORMATION
  Report Type: Spontaneous
  Country: BE (occurrence: BE)
  Receive Date: 20200129
  Receipt Date: 20250627
  Transmission Date: 20250716
  Serious: Yes (Hospitalization, Other)
  Sender: AUROBINDO
  Company Number: BE-KRKA-BE2020K00567LIT

PATIENT
  Age: 44 Year
  Sex: Female

DRUGS (11)
  1. ASPIRIN [Suspect]
     Active Substance: ASPIRIN
     Indication: Antiplatelet therapy
     Route: 065
  2. ASPIRIN [Suspect]
     Active Substance: ASPIRIN
     Indication: Coronary artery dissection
  3. BISOPROLOL [Suspect]
     Active Substance: BISOPROLOL
     Indication: Coronary artery dissection
     Route: 065
  4. CLOPIDOGREL [Suspect]
     Active Substance: CLOPIDOGREL BISULFATE
     Indication: Antiplatelet therapy
     Route: 065
  5. CLOPIDOGREL [Suspect]
     Active Substance: CLOPIDOGREL BISULFATE
     Indication: Coronary artery dissection
  6. PRAVASTATIN [Suspect]
     Active Substance: PRAVASTATIN
     Indication: Coronary artery dissection
     Route: 065
  7. NITRIC ACID [Suspect]
     Active Substance: NITRIC ACID
     Indication: Product used for unknown indication
     Route: 062
  8. MYCOPHENOLATE MOFETIL [Concomitant]
     Active Substance: MYCOPHENOLATE MOFETIL
     Indication: Prophylaxis against transplant rejection
     Route: 065
  9. MYCOPHENOLATE MOFETIL [Concomitant]
     Active Substance: MYCOPHENOLATE MOFETIL
     Indication: Transplant rejection
  10. TACROLIMUS [Concomitant]
     Active Substance: TACROLIMUS
     Indication: Prophylaxis against transplant rejection
     Route: 065
  11. TACROLIMUS [Concomitant]
     Active Substance: TACROLIMUS
     Indication: Transplant rejection

REACTIONS (8)
  - Chest pain [Recovered/Resolved]
  - Ventricular tachycardia [Recovered/Resolved]
  - Headache [Unknown]
  - Hypokinesia [Unknown]
  - Left ventricular dysfunction [Recovered/Resolved]
  - Condition aggravated [Recovered/Resolved]
  - Coronary artery dissection [Recovered/Resolved]
  - Ventricular hypokinesia [Recovered/Resolved]
